FAERS Safety Report 8391036-7 (Version None)
Quarter: 2012Q2

REPORT INFORMATION
  Report Type: 
  Country: None (occurrence: None)
  Receive Date: 20120521
  Receipt Date: 20120508
  Transmission Date: 20120825
  Serious: Yes (Hospitalization)
  Sender: FDA-Public Use
  Company Number: 2012SP023290

PATIENT
  Age: 51 Year
  Sex: Male

DRUGS (6)
  1. COPEGUS [Suspect]
     Indication: PRODUCT USED FOR UNKNOWN INDICATION
     Dosage: 400 MG;BID
     Dates: start: 20120201, end: 20120423
  2. BOCEPREVIR (SCH-503034) [Suspect]
     Indication: HEPATITIS C
     Dosage: 800 MG;TID;PO
     Route: 048
     Dates: start: 20120229, end: 20120423
  3. PEGASYS [Suspect]
     Dosage: SEE IMAGE
     Route: 058
     Dates: start: 20120201
  4. PEGASYS [Suspect]
     Dosage: SEE IMAGE
     Route: 058
     Dates: start: 20120412, end: 20120419
  5. PEGASYS [Suspect]
     Indication: PRODUCT USED FOR UNKNOWN INDICATION
     Dosage: 180 MG;SC ; 135 MG;SC
     Route: 058
     Dates: start: 20120201
  6. PEGASYS [Suspect]
     Indication: PRODUCT USED FOR UNKNOWN INDICATION
     Dosage: 180 MG;SC ; 135 MG;SC
     Route: 058
     Dates: start: 20120412, end: 20120419

REACTIONS (9)
  - STAPHYLOCOCCAL SEPSIS [None]
  - WOUND [None]
  - ALANINE AMINOTRANSFERASE INCREASED [None]
  - SEPTIC SHOCK [None]
  - AGRANULOCYTOSIS [None]
  - BLOOD BILIRUBIN INCREASED [None]
  - THROMBOCYTOPENIA [None]
  - DECREASED APPETITE [None]
  - ASPARTATE AMINOTRANSFERASE INCREASED [None]
